FAERS Safety Report 4635039-4 (Version None)
Quarter: 2005Q2

REPORT INFORMATION
  Report Type: 
  Country: None (occurrence: None)
  Receive Date: 20050411
  Receipt Date: 20050405
  Transmission Date: 20051028
  Serious: Yes (Life-Threatening, Hospitalization, Other)
  Sender: FDA-Public Use
  Company Number: 050405-0000619

PATIENT
  Age: 41 Year
  Sex: Male

DRUGS (1)
  1. METHAMPHETAMINE HCL [Suspect]
     Indication: DRUG ABUSER

REACTIONS (48)
  - ACUTE ABDOMEN [None]
  - AGITATION [None]
  - ALANINE AMINOTRANSFERASE INCREASED [None]
  - ASPARTATE AMINOTRANSFERASE INCREASED [None]
  - BAND NEUTROPHIL PERCENTAGE INCREASED [None]
  - BLOOD ALKALINE PHOSPHATASE INCREASED [None]
  - BLOOD BICARBONATE DECREASED [None]
  - BLOOD BICARBONATE INCREASED [None]
  - BLOOD CALCIUM INCREASED [None]
  - BLOOD CANNABINOIDS [None]
  - BLOOD CREATINE INCREASED [None]
  - BLOOD CREATINE PHOSPHOKINASE INCREASED [None]
  - BLOOD GLUCOSE DECREASED [None]
  - BLOOD PH DECREASED [None]
  - BLOOD PRESSURE DECREASED [None]
  - BLOOD SODIUM INCREASED [None]
  - BLOOD UREA INCREASED [None]
  - BODY TEMPERATURE INCREASED [None]
  - CARDIAC MURMUR [None]
  - CONFUSIONAL STATE [None]
  - CYANOSIS [None]
  - DEPRESSED LEVEL OF CONSCIOUSNESS [None]
  - DIALYSIS [None]
  - DRUG ABUSER [None]
  - DRUG SCREEN POSITIVE [None]
  - ELECTROCARDIOGRAM CHANGE [None]
  - ELECTROCARDIOGRAM T WAVE PEAKED [None]
  - HAEMATOCRIT INCREASED [None]
  - HAEMODIALYSIS [None]
  - HAEMOGLOBIN INCREASED [None]
  - HAEMORRHAGE [None]
  - HEART RATE INCREASED [None]
  - HYPERKALAEMIA [None]
  - HYPERTHERMIA [None]
  - HYPOTENSION [None]
  - INTESTINAL INFARCTION [None]
  - MUCOSAL DRYNESS [None]
  - MULTI-ORGAN FAILURE [None]
  - MUSCLE SPASMS [None]
  - NAUSEA [None]
  - PCO2 INCREASED [None]
  - PLATELET COUNT INCREASED [None]
  - PO2 INCREASED [None]
  - RENAL FAILURE ACUTE [None]
  - SHOCK [None]
  - SINUS TACHYCARDIA [None]
  - VOMITING [None]
  - WHITE BLOOD CELL COUNT DECREASED [None]
